FAERS Safety Report 26184854 (Version 1)
Quarter: 2025Q4

REPORT INFORMATION
  Report Type: Spontaneous
  Country: EU (occurrence: EU)
  Receive Date: 20251222
  Receipt Date: 20251222
  Transmission Date: 20260117
  Serious: Yes (Other)
  Sender: RK PHARMA
  Company Number: EU-RK PHARMA, INC-20251200180

PATIENT

DRUGS (8)
  1. DICLOFENAC POTASSIUM [Suspect]
     Active Substance: DICLOFENAC POTASSIUM
     Indication: Post procedural inflammation
     Dosage: 1 DROP, TID
     Route: 061
  2. DICLOFENAC POTASSIUM [Suspect]
     Active Substance: DICLOFENAC POTASSIUM
     Indication: Prophylaxis
  3. TOBRAMYCIN [Concomitant]
     Active Substance: TOBRAMYCIN
     Indication: Prophylaxis
     Dosage: 1 DROP, QID FOR ONE WEEK
  4. TOBRAMYCIN [Concomitant]
     Active Substance: TOBRAMYCIN
     Dosage: 1 DROP EVERY 7 DAYS
  5. DEXAMETHASONE [Concomitant]
     Active Substance: DEXAMETHASONE
     Indication: Prophylaxis
     Dosage: 1 DROP, QID
  6. DEXAMETHASONE [Concomitant]
     Active Substance: DEXAMETHASONE
     Dosage: 1 DROP, QW FOR (EVERY SEVEN DAYS)
  7. LEVOFLOXACIN [Concomitant]
     Active Substance: LEVOFLOXACIN
     Indication: Prophylaxis
     Dosage: 1 DROP, QID FOR 7 DAYS
  8. METHOTREXATE [Concomitant]
     Active Substance: METHOTREXATE
     Indication: Rheumatoid arthritis
     Dosage: 12.5 MILLIGRAM, QW

REACTIONS (2)
  - Ulcerative keratitis [Recovering/Resolving]
  - Conjunctival hyperaemia [Recovering/Resolving]
